FAERS Safety Report 7986110-0 (Version None)
Quarter: 2011Q4

REPORT INFORMATION
  Report Type: 
  Country: None (occurrence: None)
  Receive Date: 20111216
  Receipt Date: 20110624
  Transmission Date: 20120403
  Serious: No
  Sender: FDA-Public Use
  Company Number: US-BRISTOL-MYERS SQUIBB COMPANY-15857303

PATIENT
  Age: 3 Decade
  Sex: Male

DRUGS (2)
  1. ANTIDEPRESSANT [Concomitant]
  2. ABILIFY [Suspect]
     Indication: MAJOR DEPRESSION
     Dosage: INITIALLY GIVEN 1MG,THEN INCREASED TO 2MG,AGAIN 1MG GIVEN

REACTIONS (1)
  - EXERTIONAL HEADACHE [None]
